FAERS Safety Report 11229709 (Version 2)
Quarter: 2015Q3

REPORT INFORMATION
  Report Type: Report from Study
  Country: DE (occurrence: DE)
  Receive Date: 20150630
  Receipt Date: 20150806
  Transmission Date: 20151125
  Serious: Yes (Hospitalization, Other)
  Sender: FDA-Public Use
  Company Number: DE-GILEAD-2015-0160435

PATIENT
  Age: 72 Year
  Sex: Female
  Weight: 72 kg

DRUGS (5)
  1. DEXAMYTREX                         /01106201/ [Concomitant]
     Dosage: UNK
     Dates: start: 20150331, end: 20150512
  2. AZELASTINE [Concomitant]
     Active Substance: AZELASTINE
  3. INFLANEFRAN [Concomitant]
     Dosage: UNK
     Dates: start: 20150331, end: 20150512
  4. VISCO VISION [Concomitant]
     Dosage: UNK
     Dates: start: 20150331, end: 20150512
  5. LEDIPASVIR/SOFOSBUVIR [Suspect]
     Active Substance: LEDIPASVIR\SOFOSBUVIR
     Indication: CHRONIC HEPATITIS C
     Dosage: 1 DF, QD
     Route: 048
     Dates: start: 20150202

REACTIONS (1)
  - Bile duct stone [Recovered/Resolved]

NARRATIVE: CASE EVENT DATE: 20150608
